FAERS Safety Report 4709424-6 (Version None)
Quarter: 2005Q3

REPORT INFORMATION
  Report Type: 
  Country: None (occurrence: None)
  Receive Date: 20050707
  Receipt Date: 20050707
  Transmission Date: 20060218
  Serious: Yes (Other)
  Sender: FDA-Public Use
  Company Number: None

PATIENT
  Age: 50 Year
  Sex: Male
  Weight: 74.2085 kg

DRUGS (10)
  1. CISPLATIN [Suspect]
     Indication: OROPHARYNGEAL CANCER STAGE UNSPECIFIED
     Dosage: 75 MG/M2
     Dates: start: 20050331
  2. CISPLATIN [Suspect]
     Indication: OROPHARYNGEAL CANCER STAGE UNSPECIFIED
     Dosage: 75 MG/M2
     Dates: start: 20050420
  3. TAXOTERE [Concomitant]
     Indication: OROPHARYNGEAL CANCER STAGE UNSPECIFIED
     Dosage: 75 MG/M2
     Dates: start: 20050331
  4. TAXOTERE [Concomitant]
     Indication: OROPHARYNGEAL CANCER STAGE UNSPECIFIED
     Dosage: 75 MG/M2
     Dates: start: 20050420
  5. PROCRIT [Concomitant]
  6. FENTANYL [Concomitant]
  7. DECADRON [Concomitant]
  8. HYDROCODONE BITARTRATE [Concomitant]
  9. ELIXIR [Concomitant]
  10. MAGIC MOUTHWASH [Concomitant]

REACTIONS (1)
  - HEPATITIS B [None]
